FAERS Safety Report 16478190 (Version 2)
Quarter: 2019Q3

REPORT INFORMATION
  Report Type: Spontaneous
  Country: US (occurrence: US)
  Receive Date: 20190626
  Receipt Date: 20190823
  Transmission Date: 20191004
  Serious: Yes (Other)
  Sender: FDA-Public Use
  Company Number: US-PFIZER INC-2019272180

PATIENT
  Sex: Male

DRUGS (1)
  1. TAFAMIDIS [Suspect]
     Active Substance: TAFAMIDIS MEGLUMINE
     Dosage: 1 DF, DAILY (1 PILL/D)
     Route: 048
     Dates: start: 2018

REACTIONS (4)
  - Cardiorenal syndrome [Unknown]
  - Urine analysis abnormal [Unknown]
  - Chronic kidney disease [Unknown]
  - Disease progression [Unknown]

NARRATIVE: CASE EVENT DATE: 201905
